FAERS Safety Report 7823430-4 (Version None)
Quarter: 2011Q4

REPORT INFORMATION
  Report Type: 
  Country: None (occurrence: None)
  Receive Date: 20111019
  Receipt Date: 20111011
  Transmission Date: 20120403
  Serious: Yes (Other)
  Sender: FDA-Public Use
  Company Number: US-BAYER-2011-078173

PATIENT
  Age: 69 Year
  Sex: Male
  Weight: 108 kg

DRUGS (10)
  1. MDX-010 [Suspect]
     Dosage: 10MG/KG
     Route: 042
     Dates: start: 20110822, end: 20110822
  2. OMEGA-3 FATTY ACIDS [Concomitant]
     Dosage: 1 CAP DAILY
  3. MULTIVITAMIN PREPARATION + MINERAL SUPPLEMENT [Concomitant]
     Dosage: DAILY
     Route: 048
  4. MDX-010 [Suspect]
     Indication: MALIGNANT MELANOMA
     Dosage: 10MG/KG
     Route: 042
     Dates: start: 20110803, end: 20110803
  5. SARGRAMOSTIM [Suspect]
     Dosage: DAILY DOSE 250 MCG/24HR
     Route: 058
     Dates: start: 20110822
  6. SARGRAMOSTIM [Suspect]
     Indication: MALIGNANT MELANOMA
     Dosage: DAILY DOSE 250 MCG/24HR
     Route: 058
     Dates: start: 20110803
  7. ATARAX [ALPRAZOLAM] [Concomitant]
     Dosage: DAILY DOSE 25 MG
  8. SIMVASTATIN [Concomitant]
     Dosage: DAILY DOSE 10 MG
     Route: 048
  9. ACETAMINOPHEN [Concomitant]
     Dosage: PER PM
  10. ASPIRIN [Concomitant]
     Dosage: DAILY DOSE 325 MG

REACTIONS (1)
  - HYPERURICAEMIA [None]
